FAERS Safety Report 7535622-2 (Version None)
Quarter: 2011Q2

REPORT INFORMATION
  Report Type: 
  Country: None (occurrence: None)
  Receive Date: 20110609
  Receipt Date: 20110530
  Transmission Date: 20111010
  Serious: Yes (Hospitalization)
  Sender: FDA-Public Use
  Company Number: US-BAYER-2011-048419

PATIENT
  Age: 15 Year
  Sex: Female
  Weight: 61.769 kg

DRUGS (6)
  1. LO/OVRAL [Suspect]
     Dosage: UNK
     Dates: start: 20080827, end: 20090127
  2. IBUPROFEN [Concomitant]
     Indication: NECK PAIN
  3. YAZ [Suspect]
     Indication: CONTRACEPTION
     Dosage: UNK
     Dates: start: 20090127, end: 20090218
  4. ASPIRIN [Concomitant]
     Indication: NECK PAIN
  5. ASPIRIN [Concomitant]
     Indication: HEADACHE
     Dosage: UNK
     Dates: start: 20090201
  6. IBUPROFEN [Concomitant]
     Indication: HEADACHE
     Dosage: UNK
     Dates: start: 20090201

REACTIONS (8)
  - DEEP VEIN THROMBOSIS [None]
  - MUSCULOSKELETAL DISCOMFORT [None]
  - OEDEMA PERIPHERAL [None]
  - PERIPHERAL COLDNESS [None]
  - JOINT RANGE OF MOTION DECREASED [None]
  - PAIN IN EXTREMITY [None]
  - PAIN [None]
  - LIMB DISCOMFORT [None]
